FAERS Safety Report 7904563-0 (Version None)
Quarter: 2011Q4

REPORT INFORMATION
  Report Type: 
  Country: None (occurrence: None)
  Receive Date: 20111109
  Receipt Date: 20111101
  Transmission Date: 20120403
  Serious: No
  Sender: FDA-Public Use
  Company Number: US-B.I. PHARMACEUTICALS,INC./RIDGEFIELD-2011-BP-25802BP

PATIENT
  Sex: Male

DRUGS (5)
  1. GLIPIZIDE [Concomitant]
  2. TRADJENTA [Suspect]
     Indication: TYPE 2 DIABETES MELLITUS
  3. LARAZA [Concomitant]
  4. UNSPECIFIED BETA BLOCKER [Concomitant]
  5. TRILIPIX [Concomitant]

REACTIONS (1)
  - NAUSEA [None]
